FAERS Safety Report 4882055-3 (Version None)
Quarter: 2006Q1

REPORT INFORMATION
  Report Type: 
  Country: None (occurrence: None)
  Receive Date: 20060117
  Receipt Date: 20050228
  Transmission Date: 20060701
  Serious: Yes (Hospitalization)
  Sender: FDA-Public Use
  Company Number: US-MERCK-0503USA00254

PATIENT
  Age: 72 Year
  Sex: Male
  Weight: 76 kg

DRUGS (5)
  1. VIOXX [Suspect]
     Indication: ARTHRALGIA
     Route: 048
     Dates: start: 20000901, end: 20040701
  2. NEURONTIN [Concomitant]
     Route: 065
  3. ELAVIL [Concomitant]
     Route: 065
  4. VICODIN [Concomitant]
     Route: 065
  5. LIPITOR [Concomitant]
     Route: 065

REACTIONS (4)
  - CARDIOVASCULAR DISORDER [None]
  - HERNIA [None]
  - MYOCARDIAL INFARCTION [None]
  - OSTEOARTHRITIS [None]
